FAERS Safety Report 12923628 (Version 1)
Quarter: 2016Q4

REPORT INFORMATION
  Report Type: Spontaneous
  Country: US (occurrence: US)
  Receive Date: 20161109
  Receipt Date: 20161109
  Transmission Date: 20170207
  Serious: Yes (Disabling)
  Sender: FDA-Public Use
  Company Number: None

PATIENT
  Age: 87 Year
  Sex: Female
  Weight: 77.11 kg

DRUGS (18)
  1. SIMVASTATIN. [Concomitant]
     Active Substance: SIMVASTATIN
  2. POTASSIUM [Concomitant]
     Active Substance: POTASSIUM
  3. IRON [Concomitant]
     Active Substance: IRON
  4. VITAMINS [Concomitant]
     Active Substance: VITAMINS
  5. CELEBREX [Concomitant]
     Active Substance: CELECOXIB
  6. CITALOPRAM [Concomitant]
     Active Substance: CITALOPRAM HYDROBROMIDE
  7. FUROSEMIDE. [Concomitant]
     Active Substance: FUROSEMIDE
  8. GABAPENTIN. [Concomitant]
     Active Substance: GABAPENTIN
  9. CALCIUM [Concomitant]
     Active Substance: CALCIUM
  10. CRANBERRY. [Concomitant]
     Active Substance: CRANBERRY
  11. ESTAZOLAM. [Concomitant]
     Active Substance: ESTAZOLAM
  12. PROLIA [Suspect]
     Active Substance: DENOSUMAB
     Indication: OSTEOPOROSIS
     Dosage: 1 EVERY 6 MOS. INJECTION
     Dates: start: 20160706
  13. LOSARTAN. [Concomitant]
     Active Substance: LOSARTAN
  14. OMEPRAZOLE. [Concomitant]
     Active Substance: OMEPRAZOLE
  15. ARIMADEX [Concomitant]
  16. WARFARIN [Concomitant]
     Active Substance: WARFARIN
  17. NEEDLES [Concomitant]
     Active Substance: NEEDLES
  18. SYNTHROID [Concomitant]
     Active Substance: LEVOTHYROXINE SODIUM

REACTIONS (5)
  - Feeling abnormal [None]
  - Depression [None]
  - Confusional state [None]
  - Quality of life decreased [None]
  - Gait disturbance [None]

NARRATIVE: CASE EVENT DATE: 20160716
